FAERS Safety Report 16999894 (Version 1)
Quarter: 2019Q4

REPORT INFORMATION
  Report Type: Spontaneous
  Country: DE (occurrence: DE)
  Receive Date: 20191106
  Receipt Date: 20191106
  Transmission Date: 20200122
  Serious: Yes (Other)
  Sender: FDA-Public Use
  Company Number: DE-SA-2019SA304165

PATIENT
  Sex: Male
  Weight: 92 kg

DRUGS (1)
  1. KARVEZIDE [Suspect]
     Active Substance: HYDROCHLOROTHIAZIDE\IRBESARTAN
     Dosage: 1 PIECE DAILY
     Route: 065
     Dates: start: 20101101

REACTIONS (5)
  - Eye irritation [Unknown]
  - Erectile dysfunction [Unknown]
  - Epistaxis [Unknown]
  - Pollakiuria [Unknown]
  - Sleep disorder [Unknown]

NARRATIVE: CASE EVENT DATE: 20101101
